FAERS Safety Report 4334201-8 (Version None)
Quarter: 2004Q2

REPORT INFORMATION
  Report Type: 
  Country: None (occurrence: None)
  Receive Date: 20040405
  Receipt Date: 20040323
  Transmission Date: 20050107
  Serious: Yes (Death, Hospitalization)
  Sender: FDA-Public Use
  Company Number: 430004M04USA

PATIENT
  Age: 46 Year
  Sex: Female
  Weight: 62.3 kg

DRUGS (5)
  1. NOVANTRONE [Suspect]
     Indication: MULTIPLE SCLEROSIS
     Dosage: 19.4 MG, 1 IN 3 MONTHS, INTRAVENOUS
     Route: 042
     Dates: start: 20011205, end: 20040301
  2. OXYBUTYNIN HYDROCHLORIDE [Concomitant]
  3. DOLASETRON MESILATE [Concomitant]
  4. MULTI-VITAMINS [Concomitant]
  5. ANTIDEPRESSANTS [Concomitant]

REACTIONS (6)
  - ACUTE MONOCYTIC LEUKAEMIA [None]
  - ASTHENIA [None]
  - BRAIN HERNIATION [None]
  - HEART RATE INCREASED [None]
  - SPLEEN DISORDER [None]
  - SUBDURAL HAEMATOMA [None]
